FAERS Safety Report 16312799 (Version 1)
Quarter: 2019Q2

REPORT INFORMATION
  Report Type: Other
  Country: DE (occurrence: DE)
  Receive Date: 20190515
  Receipt Date: 20190515
  Transmission Date: 20190711
  Serious: Yes (Other)
  Sender: FDA-Public Use
  Company Number: DE-LUPIN PHARMACEUTICALS INC.-2019-02842

PATIENT
  Age: 7 Week
  Sex: Female
  Weight: 2.96 kg

DRUGS (3)
  1. LAMOTRIGINE. [Suspect]
     Active Substance: LAMOTRIGINE
     Indication: EPILEPSY
     Dosage: 900 MILLIGRAM, QD (AT DELIVERY)
     Route: 063
  2. LAMOTRIGINE. [Suspect]
     Active Substance: LAMOTRIGINE
     Dosage: DOSAGE REDUCED (DOSAGE REDUCED STEP BY STEP TO 500MG/D)
     Route: 063
  3. LAMOTRIGINE. [Suspect]
     Active Substance: LAMOTRIGINE
     Dosage: 500 MILLIGRAM, QD (DOSAGE REDUCED STEP BY STEP TO 500MG/D)
     Route: 063

REACTIONS (2)
  - Thrombocytosis [Recovering/Resolving]
  - Exposure via breast milk [Unknown]
